FAERS Safety Report 5235813-X (Version None)
Quarter: 2007Q1

REPORT INFORMATION
  Report Type: 
  Country: None (occurrence: None)
  Receive Date: 20070212
  Receipt Date: 20070201
  Transmission Date: 20070707
  Serious: Yes (Hospitalization)
  Sender: FDA-Public Use
  Company Number: 2007AP00463

PATIENT
  Age: 68 Year
  Sex: Male
  Weight: 38 kg

DRUGS (10)
  1. MEROPENEM [Suspect]
     Indication: PNEUMONIA
     Route: 041
     Dates: start: 20060829, end: 20060903
  2. AMBISOME [Suspect]
     Indication: BRONCHOPULMONARY ASPERGILLOSIS
     Route: 041
     Dates: start: 20060914, end: 20060914
  3. AMBISOME [Suspect]
     Route: 041
     Dates: start: 20060915, end: 20060922
  4. AMBISOME [Suspect]
     Route: 041
     Dates: start: 20060923, end: 20060927
  5. THIENAM [Suspect]
     Indication: PNEUMONIA
     Route: 041
     Dates: start: 20060904, end: 20060913
  6. CYANAMIDE [Concomitant]
     Indication: ALCOHOLISM
     Route: 048
     Dates: start: 19820101, end: 20060923
  7. MUCODYNE [Concomitant]
     Indication: BRONCHITIS CHRONIC
     Route: 048
     Dates: start: 20060829, end: 20060921
  8. MUCOSOLVAN [Concomitant]
     Indication: BRONCHITIS CHRONIC
     Route: 048
     Dates: start: 20060829, end: 20060921
  9. CHLORPROMAZINE HCL [Concomitant]
     Indication: HICCUPS
     Route: 048
     Dates: start: 20060908, end: 20060921
  10. SLO-K [Concomitant]
     Indication: HYPOKALAEMIA
     Route: 048
     Dates: start: 20060919, end: 20061025

REACTIONS (5)
  - HICCUPS [None]
  - HYPOKALAEMIA [None]
  - LUNG DISORDER [None]
  - PLEURAL EFFUSION [None]
  - PNEUMOTHORAX [None]
